FAERS Safety Report 15924253 (Version 5)
Quarter: 2020Q2

REPORT INFORMATION
  Report Type: Report from Study
  Country: US (occurrence: US)
  Receive Date: 20190205
  Receipt Date: 20200520
  Transmission Date: 20200713
  Serious: Yes (Hospitalization)
  Sender: FDA-Public Use
  Company Number: US-ACTELION-A-NJ2019-185749

PATIENT
  Sex: Female
  Weight: 52.61 kg

DRUGS (4)
  1. COUMADIN [Concomitant]
     Active Substance: WARFARIN SODIUM
  2. OPSUMIT [Suspect]
     Active Substance: MACITENTAN
     Indication: PULMONARY ARTERIAL HYPERTENSION
     Dosage: 10 MG, QD
     Route: 048
  3. ELIQUIS [Suspect]
     Active Substance: APIXABAN
     Indication: PRODUCT USED FOR UNKNOWN INDICATION
     Route: 065
  4. TADALAFIL. [Concomitant]
     Active Substance: TADALAFIL

REACTIONS (8)
  - Upper gastrointestinal haemorrhage [Unknown]
  - Endocarditis bacterial [Unknown]
  - Pyrexia [Unknown]
  - Hospitalisation [Unknown]
  - Pneumonia [Unknown]
  - Thrombosis [Unknown]
  - Pain [Unknown]
  - Pulmonary embolism [Unknown]
